FAERS Safety Report 17455506 (Version 1)
Quarter: 2020Q1

REPORT INFORMATION
  Report Type: Spontaneous
  Country: US (occurrence: US)
  Receive Date: 20200225
  Receipt Date: 20200225
  Transmission Date: 20200409
  Serious: No
  Sender: FDA-Public Use
  Company Number: US-JNJFOC-20200205183

PATIENT
  Sex: Male
  Weight: 61.29 kg

DRUGS (2)
  1. TYLENOL [Suspect]
     Active Substance: ACETAMINOPHEN
     Indication: BURNING SENSATION
     Dosage: 2 TABLET ONCE
     Route: 048
  2. NEUTROGENA HEALTHY SKIN FIRMING SUNSCREEN BROAD SPECTRUM SPF15 [Concomitant]
     Active Substance: AVOBENZONE\HOMOSALATE\OCTISALATE\OCTOCRYLENE\OXYBENZONE
     Indication: THERAPEUTIC PROCEDURE
     Dosage: GENEROUS APPLICATION
     Route: 061

REACTIONS (1)
  - Product use in unapproved indication [Unknown]
